FAERS Safety Report 8938532 (Version 1)
Quarter: 2012Q4

REPORT INFORMATION
  Report Type: 
  Country: US (occurrence: US)
  Receive Date: 20121203
  Receipt Date: 20121203
  Transmission Date: 20130627
  Serious: Yes (Other)
  Sender: FDA-Public Use
  Company Number: PHEH2012US023361

PATIENT
  Sex: Female

DRUGS (13)
  1. DIOVAN HCT [Suspect]
     Dosage: 1 DF, QD (80 mg val/ 12.5 mg HCT)
     Dates: end: 201210
  2. METOPROLOL [Concomitant]
     Dosage: 3 DF, per day
  3. DIGOXIN [Concomitant]
  4. TRICOR [Concomitant]
     Dosage: 145 mg, UNK
  5. METFORMIN [Concomitant]
     Dosage: 200 mg, PRN
  6. ALBUTEROL [Concomitant]
     Dosage: 0.083 %
  7. ASA [Concomitant]
     Dosage: 1 DF/  per day
  8. NOVOLOG [Concomitant]
     Dosage: 2 DF per day
  9. LEVEMIR [Concomitant]
     Dosage: 65 U, UNK
  10. PRAVASTATIN [Concomitant]
  11. FISH OIL [Concomitant]
     Dosage: 2 DF, per day
  12. CHOLECALCIFEROL [Concomitant]
  13. CRANBERRY BERCO [Concomitant]
     Dosage: 4 pills a day

REACTIONS (2)
  - Diabetes mellitus [Unknown]
  - Hypertension [Unknown]
